FAERS Safety Report 6718522-7 (Version None)
Quarter: 2010Q2

REPORT INFORMATION
  Report Type: 
  Country: None (occurrence: None)
  Receive Date: 20100510
  Receipt Date: 20100427
  Transmission Date: 20101027
  Serious: Yes (Other)
  Sender: FDA-Public Use
  Company Number: GB-WATSON-2010-06233

PATIENT

DRUGS (5)
  1. LAMOTRIGINE [Suspect]
     Indication: GRAND MAL CONVULSION
     Dosage: 25 MG, UNK
     Route: 048
     Dates: start: 20100401
  2. LAMOTRIGINE [Suspect]
     Dosage: 50 MG, UNK
     Route: 048
     Dates: start: 20100413
  3. KALMS                              /00796301/ [Concomitant]
     Indication: INSOMNIA
     Dosage: 1 DF, DAILY
     Route: 048
     Dates: start: 20091201, end: 20100315
  4. KALMS                              /00796301/ [Concomitant]
     Indication: NERVOUSNESS
  5. NYTOL                              /00000402/ [Concomitant]
     Indication: INSOMNIA
     Dosage: 1 DF, DAILY
     Route: 048
     Dates: start: 20100101, end: 20100315

REACTIONS (2)
  - NECK MASS [None]
  - RASH GENERALISED [None]
